FAERS Safety Report 6436083-7 (Version None)
Quarter: 2009Q4

REPORT INFORMATION
  Report Type: 
  Country: None (occurrence: None)
  Receive Date: 20091110
  Receipt Date: 20091110
  Transmission Date: 20100525
  Serious: Yes (Hospitalization)
  Sender: FDA-Public Use
  Company Number: None

PATIENT
  Age: 66 Year
  Sex: Male

DRUGS (1)
  1. CHLORPROMAZINE [Suspect]
     Indication: SCHIZOAFFECTIVE DISORDER
     Dates: start: 20040713, end: 20090702

REACTIONS (3)
  - FATIGUE [None]
  - LETHARGY [None]
  - SEDATION [None]
